FAERS Safety Report 9372099 (Version 1)
Quarter: 2013Q2

REPORT INFORMATION
  Report Type: Spontaneous
  Country: US (occurrence: None)
  Receive Date: 20130625
  Receipt Date: 20130625
  Transmission Date: 20140414
  Serious: Yes (Hospitalization)
  Sender: FDA-Public Use
  Company Number: 2013AP006201

PATIENT
  Age: 47 Year
  Sex: Female

DRUGS (1)
  1. TIZANIDINE HYDROCHLROIDE [Suspect]

REACTIONS (4)
  - Unresponsive to stimuli [None]
  - Hypokalaemia [None]
  - Mental impairment [None]
  - Urine potassium increased [None]
